FAERS Safety Report 4923826-4 (Version None)
Quarter: 2006Q1

REPORT INFORMATION
  Report Type: 
  Country: None (occurrence: None)
  Receive Date: 20060227
  Receipt Date: 20060216
  Transmission Date: 20060701
  Serious: Yes (Death)
  Sender: FDA-Public Use
  Company Number: JP-JNJFOC-20060202991

PATIENT
  Sex: Male

DRUGS (12)
  1. CRAVIT [Suspect]
     Indication: PNEUMONIA
     Route: 048
     Dates: start: 20040212, end: 20040220
  2. ALEVIATIN [Concomitant]
     Indication: EPILEPSY
     Route: 048
     Dates: start: 20040118, end: 20040118
  3. APLACE [Concomitant]
     Indication: GASTRITIS
     Route: 048
     Dates: start: 20040121, end: 20040218
  4. COVERSYL [Concomitant]
     Indication: HYPERTENSION
     Route: 048
     Dates: start: 20040121, end: 20040219
  5. LASIX [Concomitant]
     Route: 042
     Dates: start: 20040124
  6. LASIX [Concomitant]
     Indication: CARDIAC FAILURE
     Route: 042
     Dates: start: 20040124
  7. LASIX [Concomitant]
     Route: 048
     Dates: start: 20040206, end: 20040220
  8. RADICUT [Concomitant]
     Indication: CEREBRAL INFARCTION
     Route: 042
     Dates: start: 20040109, end: 20040121
  9. GLYCEROL 2.6% [Concomitant]
     Indication: CEREBRAL INFARCTION
     Route: 042
     Dates: start: 20040109, end: 20040120
  10. HANP [Concomitant]
     Indication: CARDIAC FAILURE
     Route: 042
     Dates: start: 20040124, end: 20040125
  11. PREDOPA [Concomitant]
     Indication: CARDIAC FAILURE
     Route: 042
     Dates: start: 20040124, end: 20040126
  12. VANCOMYCIN HYDROCHLORIDE [Concomitant]
     Route: 048
     Dates: start: 20040202, end: 20040209

REACTIONS (2)
  - AGRANULOCYTOSIS [None]
  - DISSEMINATED INTRAVASCULAR COAGULATION [None]
